FAERS Safety Report 19836563 (Version 1)
Quarter: 2021Q3

REPORT INFORMATION
  Report Type: Spontaneous
  Country: US (occurrence: US)
  Receive Date: 20210915
  Receipt Date: 20210915
  Transmission Date: 20211014
  Serious: No
  Sender: FDA-Public Use
  Company Number: US-BIOHAVEN PHARMACEUTICALS-2021BHV00730

PATIENT
  Age: 63 Year
  Sex: Female
  Weight: 59.86 kg

DRUGS (11)
  1. NURTEC ODT [Suspect]
     Active Substance: RIMEGEPANT SULFATE
     Indication: MIGRAINE
     Dosage: 75 MG, TWICE
     Route: 048
     Dates: start: 20210526, end: 20210529
  2. VALACYCLOVIR [Concomitant]
     Active Substance: VALACYCLOVIR HYDROCHLORIDE
     Dosage: 1 G, 3X/DAY
  3. SUCRALFATE. [Concomitant]
     Active Substance: SUCRALFATE
     Dosage: 1 TABLETS, 3X/DAY
  4. NUCYNTA [Concomitant]
     Active Substance: TAPENTADOL HYDROCHLORIDE
     Dosage: UNK MG
  5. PRIMIDONE. [Concomitant]
     Active Substance: PRIMIDONE
     Dosage: 250 UNK
  6. PREDNISONE. [Concomitant]
     Active Substance: PREDNISONE
     Dosage: 4 MG, 1X/DAY
  7. SYNTHROID [Concomitant]
     Active Substance: LEVOTHYROXINE SODIUM
  8. FOLIC ACID. [Concomitant]
     Active Substance: FOLIC ACID
     Dosage: UNK MG
  9. CYMBALTA [Concomitant]
     Active Substance: DULOXETINE HYDROCHLORIDE
     Dosage: 30 MG, 1X/DAY IN AM
  10. BACLOFEN. [Concomitant]
     Active Substance: BACLOFEN
  11. CYMBALTA [Concomitant]
     Active Substance: DULOXETINE HYDROCHLORIDE
     Dosage: 15 MG, 1X/DAY IN PM

REACTIONS (4)
  - Glossodynia [Recovering/Resolving]
  - Tongue discolouration [Recovering/Resolving]
  - Pain [Not Recovered/Not Resolved]
  - Swollen tongue [Recovering/Resolving]

NARRATIVE: CASE EVENT DATE: 202105
